FAERS Safety Report 9228249 (Version 2)
Quarter: 2017Q3

REPORT INFORMATION
  Report Type: Spontaneous
  Country: MA (occurrence: MA)
  Receive Date: 20130412
  Receipt Date: 20170818
  Transmission Date: 20171128
  Serious: Yes (Other)
  Sender: FDA-Public Use
  Company Number: MA-ROCHE-1209700

PATIENT
  Age: 34 Year
  Sex: Female

DRUGS (2)
  1. HEPARIN [Suspect]
     Active Substance: HEPARIN SODIUM
     Indication: INTRACARDIAC THROMBUS
     Dosage: 1000 IU/H
     Route: 065
  2. METALYSE [Suspect]
     Active Substance: TENECTEPLASE
     Indication: INTRACARDIAC THROMBUS
     Route: 065

REACTIONS (3)
  - Exposure during pregnancy [Unknown]
  - Transient ischaemic attack [Recovered/Resolved]
  - Blindness [Recovered/Resolved]
